FAERS Safety Report 14759071 (Version 4)
Quarter: 2020Q4

REPORT INFORMATION
  Report Type: Spontaneous
  Country: SG (occurrence: SG)
  Receive Date: 20180413
  Receipt Date: 20201225
  Transmission Date: 20210113
  Serious: Yes (Other)
  Sender: FDA-Public Use
  Company Number: PHHY2018SG062447

PATIENT
  Age: 11 Year
  Sex: Female

DRUGS (3)
  1. GILENYA [Suspect]
     Active Substance: FINGOLIMOD HYDROCHLORIDE
     Indication: MULTIPLE SCLEROSIS
     Dosage: 0.5 MG, QD (EVERY MORNING)
     Route: 048
     Dates: start: 20180221, end: 20180403
  2. PREDNISOLONE. [Concomitant]
     Active Substance: PREDNISOLONE
     Indication: MULTIPLE SCLEROSIS
     Dosage: UNK
     Route: 048
  3. METHYLPREDISOLONE [Concomitant]
     Active Substance: METHYLPREDNISOLONE
     Indication: MULTIPLE SCLEROSIS
     Dosage: 30 MG/KG, QD (FOR 5 DAYS IN EARLY JAN 2018)
     Route: 042
     Dates: start: 201801

REACTIONS (1)
  - Deafness neurosensory [Unknown]

NARRATIVE: CASE EVENT DATE: 201803
